FAERS Safety Report 6176958-X (Version None)
Quarter: 2009Q2

REPORT INFORMATION
  Report Type: 
  Country: None (occurrence: None)
  Receive Date: 20090501
  Receipt Date: 20090422
  Transmission Date: 20091009
  Serious: Yes (Hospitalization)
  Sender: FDA-Public Use
  Company Number: CA-AMGEN-US262664

PATIENT
  Sex: Male

DRUGS (11)
  1. PANITUMUMAB [Suspect]
     Indication: SQUAMOUS CELL CARCINOMA
     Route: 042
     Dates: start: 20080121
  2. CISPLATIN [Concomitant]
     Route: 042
     Dates: start: 20080121
  3. FLUOROURACIL [Concomitant]
     Route: 042
     Dates: start: 20080121
  4. DEXAMETHASONE TAB [Concomitant]
     Route: 048
     Dates: start: 20080121, end: 20080124
  5. GRANISETRON HCL [Concomitant]
     Route: 048
     Dates: start: 20080121, end: 20080124
  6. APREPITANT [Concomitant]
     Route: 048
     Dates: start: 20080121, end: 20080123
  7. SODIUM CHLORIDE [Concomitant]
     Dates: start: 20080121, end: 20080122
  8. OXAZEPAM [Concomitant]
     Route: 048
     Dates: start: 20080121, end: 20080125
  9. STEMETIL [Concomitant]
     Route: 048
     Dates: start: 20080122
  10. LANSOPRAZOLE [Concomitant]
     Route: 048
     Dates: start: 20080124, end: 20080126
  11. MAGNESIUM SULFATE [Concomitant]
     Route: 042
     Dates: start: 20080121, end: 20080121

REACTIONS (1)
  - PULMONARY FIBROSIS [None]
